FAERS Safety Report 9980891 (Version 1)
Quarter: 2014Q1

REPORT INFORMATION
  Report Type: Spontaneous
  Country: US (occurrence: US)
  Receive Date: 20140307
  Receipt Date: 20140307
  Transmission Date: 20141002
  Serious: No
  Sender: FDA-Public Use
  Company Number: US-GLAXOSMITHKLINE-A1017723A

PATIENT
  Age: 72 Year
  Sex: Female
  Weight: 97.7 kg

DRUGS (30)
  1. ROPINIROLE [Suspect]
     Indication: RESTLESS LEGS SYNDROME
     Dosage: 1MG UNKNOWN
     Route: 065
  2. LEVOFLOXACIN [Suspect]
     Indication: UPPER RESPIRATORY TRACT INFECTION
  3. KLONOPIN [Suspect]
     Indication: RESTLESS LEGS SYNDROME
     Dosage: .25MG AT NIGHT
     Route: 065
  4. BENICAR HCT [Concomitant]
  5. BENICAR [Concomitant]
  6. VIMPAT [Concomitant]
  7. ASPIRIN LOW DOSE [Concomitant]
  8. CETIRIZINE [Concomitant]
  9. AMLODIPINE [Concomitant]
  10. ESTRADIOL [Concomitant]
  11. BETAMETHASONE + CLOTRIMAZOLE [Concomitant]
  12. NYSTATIN [Concomitant]
  13. NAMENDA [Concomitant]
  14. VITAMIN E [Concomitant]
  15. VITAMIN B COMPLEX [Concomitant]
  16. VITAMIN D3 [Concomitant]
  17. CALCIUM W/ VITAMIN D [Concomitant]
  18. VITAMIN C [Concomitant]
  19. COQ10 [Concomitant]
  20. OMEGA Q PLUS [Concomitant]
  21. FLAXSEED [Concomitant]
  22. RED YEAST RICE [Concomitant]
  23. PSYLLIUM HUSK [Concomitant]
  24. SALINE [Concomitant]
  25. PROAIR HFA [Concomitant]
  26. EPIPEN [Concomitant]
  27. NEBULIZER [Concomitant]
  28. ALLERGY SHOTS [Concomitant]
  29. ADVAIR [Concomitant]
  30. NASACORT [Concomitant]

REACTIONS (7)
  - Fatigue [Unknown]
  - Adverse event [Unknown]
  - Upper respiratory tract infection [Unknown]
  - Asthenia [Unknown]
  - Drug ineffective [Unknown]
  - Drug interaction [Unknown]
  - Sedation [Unknown]
